FAERS Safety Report 5263171-3 (Version None)
Quarter: 2007Q1

REPORT INFORMATION
  Report Type: 
  Country: None (occurrence: None)
  Receive Date: 20070312
  Receipt Date: 20070228
  Transmission Date: 20070707
  Serious: Yes (Other)
  Sender: FDA-Public Use
  Company Number: US-PFIZER INC-2007017066

PATIENT
  Sex: Female
  Weight: 83 kg

DRUGS (6)
  1. CHANTIX [Suspect]
     Indication: SMOKING CESSATION THERAPY
     Route: 048
  2. ZOLOFT [Concomitant]
  3. LOW-OGESTREL-21 [Concomitant]
  4. PRAVASTATIN [Concomitant]
  5. MILK THISTLE [Concomitant]
  6. LEVOXYL [Concomitant]

REACTIONS (1)
  - DEPRESSION [None]
